FAERS Safety Report 6440395-0 (Version None)
Quarter: 2009Q4

REPORT INFORMATION
  Report Type: 
  Country: None (occurrence: None)
  Receive Date: 20091113
  Receipt Date: 20091110
  Transmission Date: 20100525
  Serious: Yes (Death)
  Sender: FDA-Public Use
  Company Number: PHHY2009GB41253

PATIENT
  Sex: Male

DRUGS (5)
  1. CLOZARIL [Suspect]
     Indication: SCHIZOPHRENIA
     Dosage: UNK
     Dates: start: 19990510
  2. VALPROATE SODIUM [Concomitant]
     Indication: SCHIZOAFFECTIVE DISORDER
     Dosage: 400-500MG BID
  3. VALPROATE SODIUM [Concomitant]
     Dosage: 1600MG DAILY
     Route: 048
  4. LORAZEPAM [Concomitant]
     Dosage: 2MG PRN
     Route: 048
  5. NICOTINE [Concomitant]

REACTIONS (5)
  - CONSTIPATION [None]
  - DEATH [None]
  - LUNG DISORDER [None]
  - SALIVARY HYPERSECRETION [None]
  - SCHIZOPHRENIA [None]
